FAERS Safety Report 10544738 (Version 3)
Quarter: 2014Q4

REPORT INFORMATION
  Report Type: Spontaneous
  Country: JP (occurrence: JP)
  Receive Date: 20141027
  Receipt Date: 20141121
  Transmission Date: 20150529
  Serious: Yes (Other)
  Sender: FDA-Public Use
  Company Number: JP-ABBVIE-14P-087-1266098-00

PATIENT
  Age: 33 Year
  Sex: Female
  Weight: 44 kg

DRUGS (7)
  1. MESALAZINE [Concomitant]
     Active Substance: MESALAMINE
     Indication: GASTROINTESTINAL INFLAMMATION
     Route: 048
  2. CLOSTRIDIUM BUTYRICUM [Concomitant]
     Active Substance: CLOSTRIDIUM BUTYRICUM SPORES STRAIN M-55
     Indication: GASTROINTESTINAL DISORDER
     Route: 048
     Dates: start: 20100209, end: 20121201
  3. ADALIMUMAB [Suspect]
     Active Substance: ADALIMUMAB
     Indication: CROHN^S DISEASE
     Dosage: INITIAL
     Route: 058
     Dates: start: 20111104, end: 20111104
  4. DAIKENCHUTO [Concomitant]
     Active Substance: HERBALS
     Indication: GASTROINTESTINAL DISORDER
     Route: 048
     Dates: end: 20131003
  5. ADALIMUMAB [Suspect]
     Active Substance: ADALIMUMAB
     Indication: CROHN^S DISEASE
     Dosage: AFTER 2 WEEKS
     Route: 058
     Dates: start: 20111118, end: 20111118
  6. ADALIMUMAB [Suspect]
     Active Substance: ADALIMUMAB
     Dosage: SINCE 4 WEEKS AFTER INITIAL ADMINISTRATION
     Route: 058
     Dates: start: 20111202, end: 201306
  7. PARENTERAL [Concomitant]
     Indication: GASTROINTESTINAL DISORDER
     Route: 065
     Dates: start: 20070124

REACTIONS (3)
  - Osteitis [Recovered/Resolved with Sequelae]
  - Bone disorder [Recovered/Resolved]
  - Pain in extremity [Recovered/Resolved]

NARRATIVE: CASE EVENT DATE: 20130604
